FAERS Safety Report 8036458-9 (Version None)
Quarter: 2012Q1

REPORT INFORMATION
  Report Type: 
  Country: None (occurrence: None)
  Receive Date: 20120111
  Receipt Date: 20120109
  Transmission Date: 20120608
  Serious: Yes (Other)
  Sender: FDA-Public Use
  Company Number: US-PFIZER INC-2011298433

PATIENT
  Sex: Male

DRUGS (8)
  1. LIPITOR [Suspect]
     Dosage: 40 MG, 1X/DAY
     Route: 048
  2. LIPITOR [Suspect]
     Dosage: 20MG, UNK
     Route: 048
  3. ACETAMINOPHEN [Suspect]
     Dosage: UNK
  4. LIPITOR [Suspect]
     Dosage: 20 MG, 2X/DAY
     Route: 048
  5. ASPIRIN [Suspect]
     Dosage: UNK
  6. LIPITOR [Suspect]
     Indication: BLOOD CHOLESTEROL INCREASED
     Dosage: UNK
     Route: 048
  7. LIPITOR [Suspect]
     Dosage: 40MG, UNK
     Route: 048
  8. CALCIUM [Suspect]
     Dosage: UNK

REACTIONS (2)
  - CEREBROVASCULAR ACCIDENT [None]
  - CHOKING [None]
